FAERS Safety Report 12225906 (Version 1)
Quarter: 2016Q1

REPORT INFORMATION
  Report Type: Spontaneous
  Country: US (occurrence: None)
  Receive Date: 20160330
  Receipt Date: 20160330
  Transmission Date: 20160526
  Serious: Yes (Hospitalization)
  Sender: FDA-Public Use
  Company Number: None

PATIENT
  Age: 43 Year
  Sex: Male
  Weight: 90.72 kg

DRUGS (4)
  1. FLONASE [Concomitant]
     Active Substance: FLUTICASONE PROPIONATE
  2. VITAMIN D [Concomitant]
     Active Substance: CHOLECALCIFEROL
  3. PAXIL [Concomitant]
     Active Substance: PAROXETINE HYDROCHLORIDE
  4. TAMIFLU [Suspect]
     Active Substance: OSELTAMIVIR PHOSPHATE
     Indication: INFLUENZA LIKE ILLNESS
     Route: 048
     Dates: start: 20151224, end: 20151228

REACTIONS (3)
  - Stevens-Johnson syndrome [None]
  - Corneal disorder [None]
  - Mouth haemorrhage [None]

NARRATIVE: CASE EVENT DATE: 20151228
